FAERS Safety Report 24819850 (Version 1)
Quarter: 2025Q1

REPORT INFORMATION
  Report Type: Spontaneous
  Country: US (occurrence: None)
  Receive Date: 20250108
  Receipt Date: 20250108
  Transmission Date: 20250409
  Serious: No
  Sender: FDA-CTU
  Company Number: None

PATIENT
  Age: 0 Year
  Sex: Male

DRUGS (2)
  1. TRACLEER [Suspect]
     Active Substance: BOSENTAN
     Indication: Pulmonary hypertension
     Dosage: FREQUENCY : TWICE A DAY;?
     Route: 048
     Dates: start: 20240905, end: 20241223
  2. SILDENAFIL [Suspect]
     Active Substance: SILDENAFIL

REACTIONS (3)
  - Alanine aminotransferase increased [None]
  - Gastrooesophageal reflux disease [None]
  - Weight increased [None]

NARRATIVE: CASE EVENT DATE: 20241223
